FAERS Safety Report 21842260 (Version 2)
Quarter: 2023Q2

REPORT INFORMATION
  Report Type: Spontaneous
  Country: US (occurrence: US)
  Receive Date: 20230110
  Receipt Date: 20230601
  Transmission Date: 20230721
  Serious: Yes (Hospitalization)
  Sender: FDA-Public Use
  Company Number: US-MYLANLABS-2022M1141187

PATIENT
  Age: 58 Year
  Sex: Female

DRUGS (3)
  1. ACETAMINOPHEN [Suspect]
     Active Substance: ACETAMINOPHEN
     Indication: Pain
     Dosage: UNK; LARGE AMOUNTS OF EXTRA-STRENGTH
     Route: 048
  2. FOMEPIZOLE [Suspect]
     Active Substance: FOMEPIZOLE
     Indication: Toxicity to various agents
     Dosage: 15 MILLIGRAM/KILOGRAM; ONE-TIME LOADING DOSE
     Route: 042
  3. FOMEPIZOLE [Suspect]
     Active Substance: FOMEPIZOLE
     Dosage: 10 MILLIGRAM/KILOGRAM, BID; FOUR DOSES
     Route: 042

REACTIONS (7)
  - Intentional product misuse [Recovered/Resolved]
  - Intentional overdose [Recovered/Resolved]
  - Toxicity to various agents [Recovered/Resolved]
  - Encephalopathy [Recovered/Resolved]
  - Acute kidney injury [Recovered/Resolved]
  - Liver injury [Recovered/Resolved]
  - Off label use [Unknown]
